FAERS Safety Report 21926921 (Version 1)
Quarter: 2023Q1

REPORT INFORMATION
  Report Type: Spontaneous
  Country: US (occurrence: None)
  Receive Date: 20230128
  Receipt Date: 20230128
  Transmission Date: 20230417
  Serious: Yes (Disabling)
  Sender: FDA-Public Use
  Company Number: None

PATIENT
  Sex: Female

DRUGS (1)
  1. PRAVASTATIN [Suspect]
     Active Substance: PRAVASTATIN
     Indication: Blood cholesterol
     Dosage: FREQUENCY : DAILY;?
     Route: 048
     Dates: start: 20230104, end: 20230110

REACTIONS (3)
  - Therapy change [None]
  - Oropharyngeal pain [None]
  - Nasopharyngitis [None]

NARRATIVE: CASE EVENT DATE: 20230105
